FAERS Safety Report 16786637 (Version 1)
Quarter: 2019Q3

REPORT INFORMATION
  Report Type: Spontaneous
  Country: US (occurrence: US)
  Receive Date: 20190909
  Receipt Date: 20190909
  Transmission Date: 20191005
  Serious: No
  Sender: FDA-Public Use
  Company Number: US-OSMOTICA_PHARMACEUTICAL_US_LLC-POI0573201900269

PATIENT
  Age: 80 Year
  Sex: Female
  Weight: 72.64 kg

DRUGS (4)
  1. OSMOLEX ER [Suspect]
     Active Substance: AMANTADINE
     Dates: start: 20190703, end: 20190716
  2. OSMOLEX ER [Suspect]
     Active Substance: AMANTADINE
     Indication: PARKINSONISM
     Dates: start: 20190717, end: 20190720
  3. OSMOLEX ER [Suspect]
     Active Substance: AMANTADINE
     Dates: start: 20190625, end: 20190702
  4. METOPROLOL. [Concomitant]
     Active Substance: METOPROLOL

REACTIONS (1)
  - Underdose [Recovered/Resolved]

NARRATIVE: CASE EVENT DATE: 20190718
